FAERS Safety Report 19622534 (Version 1)
Quarter: 2021Q3

REPORT INFORMATION
  Report Type: Report from Study
  Country: GB (occurrence: GB)
  Receive Date: 20210728
  Receipt Date: 20210728
  Transmission Date: 20211014
  Serious: Yes (Other)
  Sender: FDA-Public Use
  Company Number: GB-MYLANLABS-2021M1045053

PATIENT
  Age: 53 Year
  Sex: Female

DRUGS (9)
  1. COCODAMOL [Concomitant]
     Active Substance: ACETAMINOPHEN\CODEINE PHOSPHATE
     Dosage: UNK
     Route: 048
     Dates: start: 2015
  2. DICLOFENAC [Concomitant]
     Active Substance: DICLOFENAC
     Indication: BACK PAIN
     Dosage: UNK
     Route: 061
     Dates: start: 2015
  3. CAPECITABINE. [Suspect]
     Active Substance: CAPECITABINE
     Indication: BREAST CANCER METASTATIC
     Dosage: 1500 MILLIGRAM, BID
     Route: 048
     Dates: start: 20150420
  4. SALMETEROL [Concomitant]
     Active Substance: SALMETEROL
     Dosage: 25 MICROGRAM, BID
     Route: 048
     Dates: start: 2000
  5. TRASTUZUMAB. [Suspect]
     Active Substance: TRASTUZUMAB
     Indication: BREAST CANCER METASTATIC
     Dosage: 600 MILLIGRAM
     Route: 058
     Dates: start: 20150601
  6. QVAR [Concomitant]
     Active Substance: BECLOMETHASONE DIPROPIONATE
     Dosage: 100 MICROGRAM, BID
     Route: 048
     Dates: start: 2000
  7. SALBUTAMOL [Concomitant]
     Active Substance: ALBUTEROL
     Dosage: 100 MICROGRAM
     Route: 048
     Dates: start: 2000
  8. CITALOPRAM [Concomitant]
     Active Substance: CITALOPRAM HYDROBROMIDE
     Dosage: 20 MILLIGRAM, QD
     Route: 048
     Dates: start: 200601
  9. IBANDRONIC ACID. [Concomitant]
     Active Substance: IBANDRONIC ACID
     Indication: METASTASES TO BONE
     Dosage: UNK
     Route: 048
     Dates: start: 201503

REACTIONS (20)
  - Neuropathy peripheral [Recovered/Resolved]
  - Chills [Recovered/Resolved]
  - Back pain [Recovered/Resolved]
  - Mucosal inflammation [Recovered/Resolved]
  - Palmar-plantar erythrodysaesthesia syndrome [Recovered/Resolved]
  - Infection [Recovered/Resolved]
  - Oropharyngeal pain [Recovered/Resolved]
  - Diarrhoea [Recovered/Resolved]
  - Nausea [Recovered/Resolved]
  - Dyspnoea [Recovered/Resolved]
  - Dizziness [Recovered/Resolved]
  - Cough [Recovered/Resolved]
  - Oedema peripheral [Recovered/Resolved]
  - Myalgia [Recovered/Resolved]
  - Musculoskeletal pain [Recovered/Resolved]
  - Fatigue [Recovered/Resolved]
  - Stomatitis [Recovered/Resolved]
  - Headache [Recovered/Resolved]
  - Pain [Recovered/Resolved]
  - Arthralgia [Recovered/Resolved]

NARRATIVE: CASE EVENT DATE: 20150511
